FAERS Safety Report 24353479 (Version 1)
Quarter: 2024Q3

REPORT INFORMATION
  Report Type: Spontaneous
  Country: IT (occurrence: IT)
  Receive Date: 20240923
  Receipt Date: 20240923
  Transmission Date: 20241017
  Serious: No
  Sender: ROCHE
  Company Number: None

PATIENT
  Age: 52 Year
  Sex: Female

DRUGS (3)
  1. TRASTUZUMAB [Suspect]
     Active Substance: TRASTUZUMAB
     Indication: Breast cancer
     Dosage: INIZIO TERAPIA 19/04/2023 - 31/05/2023 III CICLO - 28/06/2023 IV CICLO - TERAPIA OGNI 21 GIORNI
     Route: 065
     Dates: start: 20230531, end: 20230628
  2. DOCETAXEL [Suspect]
     Active Substance: DOCETAXEL\DOCETAXEL ANHYDROUS
     Indication: Breast cancer
     Dosage: INIZIO TERAPIA 19/04/2023 - 31/05/2023 III CICLO - 28/06/2023 IV CICLO - TERAPIA OGNI 21 GIORNI
     Route: 065
     Dates: start: 20230531, end: 20230628
  3. CARBOPLATIN [Suspect]
     Active Substance: CARBOPLATIN
     Indication: Breast cancer
     Dosage: INIZIO TERAPIA 19/04/2023 - 31/05/2023 III CICLO - 28/06/2023 IV CICLO - TERAPIA OGNI 21 GIORNI
     Route: 065
     Dates: start: 20230531, end: 20230628

REACTIONS (2)
  - Diarrhoea [Recovered/Resolved]
  - Haemoglobin decreased [Recovering/Resolving]

NARRATIVE: CASE EVENT DATE: 20230619
